FAERS Safety Report 5114597-X (Version None)
Quarter: 2006Q3

REPORT INFORMATION
  Report Type: 
  Country: None (occurrence: None)
  Receive Date: 20060926
  Receipt Date: 20060914
  Transmission Date: 20061208
  Serious: Yes (Death, Other)
  Sender: FDA-Public Use
  Company Number: US-JNJFOC-20060903524

PATIENT
  Sex: Female

DRUGS (17)
  1. REMICADE [Suspect]
     Indication: RHEUMATOID ARTHRITIS
     Route: 042
  2. METHOTREXATE [Concomitant]
  3. NEURONTIN [Concomitant]
  4. PREMARIN [Concomitant]
  5. PRAVACHOL [Concomitant]
  6. EVOXAC [Concomitant]
  7. FOLIC ACID [Concomitant]
  8. VERAPAMIL EXTENDED-RELEASE [Concomitant]
  9. VICODIN [Concomitant]
  10. COUMADIN [Concomitant]
  11. DOXYCYCLINE [Concomitant]
  12. FLORICET [Concomitant]
  13. PAXIL [Concomitant]
  14. PHENERGAN [Concomitant]
  15. SOMA [Concomitant]
  16. SINGULAIR [Concomitant]
  17. OSCAL+D [Concomitant]

REACTIONS (10)
  - ABNORMAL BEHAVIOUR [None]
  - ASPHYXIA [None]
  - CARDIAC ARREST [None]
  - CUTANEOUS LUPUS ERYTHEMATOSUS [None]
  - FOREIGN BODY ASPIRATION [None]
  - FOREIGN BODY TRAUMA [None]
  - MENTAL DISORDER [None]
  - OBSTRUCTIVE AIRWAYS DISORDER [None]
  - RESPIRATORY DISORDER [None]
  - SEPSIS [None]
